FAERS Safety Report 5182712-8 (Version None)
Quarter: 2006Q4

REPORT INFORMATION
  Report Type: 
  Country: None (occurrence: None)
  Receive Date: 20061220
  Receipt Date: 20051107
  Transmission Date: 20070319
  Serious: No
  Sender: FDA-Public Use
  Company Number: US-GLAXOSMITHKLINE-A0581145A

PATIENT
  Age: 58 Year
  Sex: Female

DRUGS (2)
  1. MEMBERS MARK NTS ORIGINAL, 21MG [Suspect]
     Indication: EX-SMOKER
     Dates: start: 20051019
  2. NICORETTE (MINT) [Suspect]
     Indication: EX-SMOKER

REACTIONS (1)
  - GINGIVAL BLEEDING [None]
